FAERS Safety Report 17478073 (Version 6)
Quarter: 2020Q2

REPORT INFORMATION
  Report Type: Spontaneous
  Country: US (occurrence: US)
  Receive Date: 20200229
  Receipt Date: 20200602
  Transmission Date: 20200713
  Serious: No
  Sender: FDA-Public Use
  Company Number: US-UNITED THERAPEUTICS-UNT-2020-003115

PATIENT
  Age: 27 Year
  Sex: Female
  Weight: 83.9 kg

DRUGS (3)
  1. OPSUMIT [Concomitant]
     Active Substance: MACITENTAN
     Indication: PRODUCT USED FOR UNKNOWN INDICATION
     Dosage: UNK
     Route: 065
  2. VELETRI [Suspect]
     Active Substance: EPOPROSTENOL
     Indication: PRODUCT USED FOR UNKNOWN INDICATION
     Dosage: UNK
     Route: 042
     Dates: start: 202004
  3. REMODULIN [Suspect]
     Active Substance: TREPROSTINIL
     Indication: PULMONARY ARTERIAL HYPERTENSION
     Dosage: 0.060 ?G/KG, CONTINUING
     Route: 058
     Dates: start: 20191105, end: 202004

REACTIONS (16)
  - Infusion site pain [Recovered/Resolved]
  - Hypersensitivity [Not Recovered/Not Resolved]
  - Abdominal pain upper [Unknown]
  - Flushing [Unknown]
  - Swelling face [Recovered/Resolved]
  - Wheezing [Recovered/Resolved]
  - Headache [Not Recovered/Not Resolved]
  - Dyspnoea exertional [Not Recovered/Not Resolved]
  - Swelling of eyelid [Recovered/Resolved]
  - Throat irritation [Recovered/Resolved]
  - Dermatitis contact [Recovered/Resolved]
  - Erythema [Recovered/Resolved]
  - Infusion site reaction [Unknown]
  - Pain in jaw [Not Recovered/Not Resolved]
  - Arthralgia [Not Recovered/Not Resolved]
  - Nausea [Recovered/Resolved]

NARRATIVE: CASE EVENT DATE: 20200223
